FAERS Safety Report 4622732-2 (Version None)
Quarter: 2005Q1

REPORT INFORMATION
  Report Type: 
  Country: None (occurrence: None)
  Receive Date: 20050328
  Receipt Date: 20050328
  Transmission Date: 20050727
  Serious: Yes (Hospitalization)
  Sender: FDA-Public Use
  Company Number: None

PATIENT
  Age: 51 Year
  Sex: Male
  Weight: 83.0083 kg

DRUGS (1)
  1. QUININE 325 MG [Suspect]
     Indication: MUSCLE SPASMS
     Dosage: 1 PRN HS
     Dates: start: 20041015, end: 20050211

REACTIONS (2)
  - RASH [None]
  - THROMBOCYTOPENIA [None]
